FAERS Safety Report 6299518-9 (Version None)
Quarter: 2009Q3

REPORT INFORMATION
  Report Type: 
  Country: None (occurrence: None)
  Receive Date: 20090806
  Receipt Date: 20090729
  Transmission Date: 20100115
  Serious: Yes (Death, Hospitalization, Other)
  Sender: FDA-Public Use
  Company Number: CA-AMGEN-QUU357881

PATIENT
  Age: 61 Year
  Sex: Male
  Weight: 76.2 kg

DRUGS (18)
  1. ENBREL [Suspect]
     Indication: RHEUMATOID ARTHRITIS
     Route: 058
     Dates: start: 20090427, end: 20090712
  2. LEFLUNOMIDE [Concomitant]
  3. QUININE [Concomitant]
  4. HYDROXYZINE [Concomitant]
  5. HYDROMORPHONE HYDROCHLORIDE [Concomitant]
  6. NABILONE [Concomitant]
  7. METOPROLOL SUCCINATE [Concomitant]
  8. TYLENOL (CAPLET) [Concomitant]
  9. FELODIPINE [Concomitant]
  10. DIOVAN [Concomitant]
  11. DOXAZOSIN MESYLATE [Concomitant]
  12. FUROSEMIDE [Concomitant]
  13. FOLIC ACID [Concomitant]
  14. LIPITOR [Concomitant]
  15. ATIVAN [Concomitant]
  16. LORAZEPAM [Concomitant]
  17. DURAGESIC-100 [Concomitant]
  18. PANTOPRAZOLE SODIUM [Concomitant]

REACTIONS (8)
  - ABDOMINAL PAIN [None]
  - BLOOD ELECTROLYTES DECREASED [None]
  - COLITIS ISCHAEMIC [None]
  - DEATH [None]
  - ENTEROCOLITIS INFECTIOUS [None]
  - ILEUS [None]
  - PYREXIA [None]
  - RECTAL HAEMORRHAGE [None]
